FAERS Safety Report 5166584-3 (Version None)
Quarter: 2006Q4

REPORT INFORMATION
  Report Type: 
  Country: None (occurrence: None)
  Receive Date: 20061201
  Receipt Date: 20061201
  Transmission Date: 20070319
  Serious: Yes (Hospitalization)
  Sender: FDA-Public Use
  Company Number: None

PATIENT
  Age: 81 Year
  Sex: Male
  Weight: 104 kg

DRUGS (2)
  1. WARFARIN SODIUM [Suspect]
     Indication: PULMONARY EMBOLISM
     Dosage: 1 MG PO DAILY EXCEPT 1.5 MG ON WEDNESDAYS
     Route: 048
     Dates: start: 20060104, end: 20060624
  2. WARFARIN SODIUM [Suspect]
     Indication: VENOUS THROMBOSIS
     Dosage: 1 MG PO DAILY EXCEPT 1.5 MG ON WEDNESDAYS
     Route: 048
     Dates: start: 20060104, end: 20060624

REACTIONS (5)
  - BLADDER NEOPLASM [None]
  - HAEMATURIA [None]
  - HAEMOGLOBIN DECREASED [None]
  - INTERNATIONAL NORMALISED RATIO INCREASED [None]
  - URINARY TRACT INFECTION [None]
